FAERS Safety Report 11146711 (Version 1)
Quarter: 2015Q2

REPORT INFORMATION
  Report Type: Spontaneous
  Country: FR (occurrence: FR)
  Receive Date: 20150528
  Receipt Date: 20150528
  Transmission Date: 20150821
  Serious: Yes (Hospitalization)
  Sender: FDA-Public Use
  Company Number: FR-PFIZER INC-2015176146

PATIENT
  Age: 54 Year
  Sex: Female

DRUGS (10)
  1. SOLU-MEDROL [Suspect]
     Active Substance: METHYLPREDNISOLONE SODIUM SUCCINATE
     Dosage: 1 G, DAILY
     Route: 042
     Dates: start: 20130502, end: 20130502
  2. GILENYA [Suspect]
     Active Substance: FINGOLIMOD HYDROCHLORIDE
     Dosage: 0.5 MG, DAILY
     Route: 048
     Dates: start: 201110
  3. LEXOMIL [Concomitant]
     Active Substance: BROMAZEPAM
     Dosage: 5 PACKS
     Dates: start: 20130508, end: 20130508
  4. SOLU-MEDROL [Suspect]
     Active Substance: METHYLPREDNISOLONE SODIUM SUCCINATE
     Dosage: 1 G, DAILY
     Route: 042
     Dates: start: 20130424, end: 20130424
  5. GILENYA [Suspect]
     Active Substance: FINGOLIMOD HYDROCHLORIDE
     Dosage: ONE PACK AND HALF
     Route: 048
     Dates: start: 20130508, end: 20130508
  6. VOGALIB [Concomitant]
     Active Substance: METOPIMAZINE
     Dosage: 2 PACKS
     Dates: start: 20130508, end: 20130508
  7. SOLU-MEDROL [Suspect]
     Active Substance: METHYLPREDNISOLONE SODIUM SUCCINATE
     Dosage: 1 G, DAILY
     Route: 042
     Dates: start: 20130430, end: 20130430
  8. SOLU-MEDROL [Suspect]
     Active Substance: METHYLPREDNISOLONE SODIUM SUCCINATE
     Dosage: 1 G, DAILY
     Route: 042
     Dates: start: 20130429, end: 20130429
  9. LEXOMIL [Concomitant]
     Active Substance: BROMAZEPAM
     Dosage: 0.5 DF, DAILY
  10. SOLU-MEDROL [Suspect]
     Active Substance: METHYLPREDNISOLONE SODIUM SUCCINATE
     Dosage: 1 G, DAILY
     Route: 042
     Dates: start: 20130425, end: 20130425

REACTIONS (1)
  - Suicide attempt [Recovered/Resolved]

NARRATIVE: CASE EVENT DATE: 20130508
